FAERS Safety Report 24385098 (Version 2)
Quarter: 2025Q1

REPORT INFORMATION
  Report Type: Spontaneous
  Country: US (occurrence: US)
  Receive Date: 20241001
  Receipt Date: 20250106
  Transmission Date: 20250408
  Serious: No
  Sender: LUPIN
  Company Number: US-LUPIN PHARMACEUTICALS INC.-2024-09408

PATIENT

DRUGS (1)
  1. ALBUTEROL SULFATE [Suspect]
     Active Substance: ALBUTEROL SULFATE
     Indication: Chronic obstructive pulmonary disease
     Dosage: UNK, QID (1-PUFFS)
     Dates: start: 202408

REACTIONS (4)
  - Wrong technique in product usage process [Unknown]
  - Product expiration date issue [Unknown]
  - Device deposit issue [Unknown]
  - No adverse event [Unknown]
